FAERS Safety Report 10731899 (Version 2)
Quarter: 2015Q1

REPORT INFORMATION
  Report Type: Report from Study
  Country: US (occurrence: US)
  Receive Date: 20150123
  Receipt Date: 20150211
  Transmission Date: 20150721
  Serious: Yes (Hospitalization, Other)
  Sender: FDA-Public Use
  Company Number: US-BIOGENIDEC-2015BI002895

PATIENT
  Age: 69 Year
  Sex: Female
  Weight: 61 kg

DRUGS (18)
  1. SYSTANE (HYPROMELLOSE 2910 (4000 MPA.S)) [Concomitant]
     Active Substance: HYPROMELLOSE 2910 (4000 MPA.S)
  2. CALCIUM CARBONATE-VITAMIN D [Concomitant]
     Active Substance: CALCIUM CARBONATE\VITAMIN D
     Route: 048
  3. MELATONIN-PYRIDOXINE [Concomitant]
     Route: 048
  4. SALINE [Concomitant]
     Active Substance: SODIUM CHLORIDE
     Route: 045
  5. DULOXETINE [Concomitant]
     Active Substance: DULOXETINE
     Route: 048
  6. VOLTAREN [Concomitant]
     Active Substance: DICLOFENAC SODIUM
     Route: 061
  7. TYSABRI [Suspect]
     Active Substance: NATALIZUMAB
     Indication: PRIMARY PROGRESSIVE MULTIPLE SCLEROSIS
     Route: 042
     Dates: start: 20120928, end: 20141106
  8. ASPIRIN. [Concomitant]
     Active Substance: ASPIRIN
     Route: 048
  9. FENTANYL. [Concomitant]
     Active Substance: FENTANYL
     Route: 062
  10. TYSABRI [Suspect]
     Active Substance: NATALIZUMAB
     Indication: PRIMARY PROGRESSIVE MULTIPLE SCLEROSIS
     Route: 042
     Dates: start: 20080926, end: 20120423
  11. HYDROCODONE/ACETAMINOPHEN [Concomitant]
     Active Substance: ACETAMINOPHEN\HYDROCODONE
     Indication: PAIN
     Route: 048
  12. LEVOTHYROXINE [Concomitant]
     Active Substance: LEVOTHYROXINE
     Route: 048
  13. IBUPROFEN. [Concomitant]
     Active Substance: IBUPROFEN
  14. OXYBUTYNIN [Concomitant]
     Active Substance: OXYBUTYNIN
     Route: 048
  15. BLACK CURRANT SEED OIL [Concomitant]
     Route: 048
  16. ACETAMINOPHEN. [Concomitant]
     Active Substance: ACETAMINOPHEN
     Route: 048
  17. GABAPENTIN. [Concomitant]
     Active Substance: GABAPENTIN
     Route: 048
  18. TRAMADOL [Concomitant]
     Active Substance: TRAMADOL
     Indication: PAIN
     Route: 048

REACTIONS (8)
  - Lower limb fracture [Unknown]
  - Flank pain [Unknown]
  - Musculoskeletal pain [Unknown]
  - Product use issue [Unknown]
  - Fall [Recovered/Resolved]
  - Asthenia [Unknown]
  - Diarrhoea [Unknown]
  - Pancreatic carcinoma metastatic [Not Recovered/Not Resolved]

NARRATIVE: CASE EVENT DATE: 2012
